FAERS Safety Report 6121943-7 (Version None)
Quarter: 2009Q1

REPORT INFORMATION
  Report Type: 
  Country: None (occurrence: None)
  Receive Date: 20090317
  Receipt Date: 20090310
  Transmission Date: 20090719
  Serious: Yes (Death)
  Sender: FDA-Public Use
  Company Number: US-GILEAD-2009-0020798

PATIENT
  Sex: Female

DRUGS (6)
  1. LETAIRIS [Suspect]
     Indication: PULMONARY ARTERIAL HYPERTENSION
     Route: 048
     Dates: start: 20070712
  2. ZOCOR [Concomitant]
  3. LASIX [Concomitant]
  4. COUMADIN [Concomitant]
  5. REVATIO [Concomitant]
  6. POTASSIUM CHLORIDE [Concomitant]

REACTIONS (2)
  - CHRONIC OBSTRUCTIVE PULMONARY DISEASE [None]
  - CLOSTRIDIUM DIFFICILE COLITIS [None]
